FAERS Safety Report 9443015 (Version 2)
Quarter: 2013Q4

REPORT INFORMATION
  Report Type: Report from Study
  Country: US (occurrence: US)
  Receive Date: 20130806
  Receipt Date: 20131007
  Transmission Date: 20140711
  Serious: Yes (Hospitalization)
  Sender: FDA-Public Use
  Company Number: US-ACTELION-A-NJ2013-85204

PATIENT
  Age: 63 Year
  Sex: Female

DRUGS (20)
  1. VELETRI [Suspect]
     Indication: PULMONARY ARTERIAL HYPERTENSION
     Dosage: 26.5 NG/KG, PER MIN
     Route: 042
     Dates: start: 20101110
  2. SILDENAFIL [Concomitant]
  3. COUMADIN [Concomitant]
     Dosage: 4 MG, QOD
  4. LETAIRIS [Concomitant]
     Dosage: 10 MG, UNK
  5. TADALAFIL [Concomitant]
     Dosage: 40 MG, UNK
  6. SPIRONOLACTONE [Concomitant]
     Dosage: 25 MG, UNK
  7. POTASSIUM CHLORIDE [Concomitant]
     Dosage: 10 MEQ, UNK
  8. PREDNISONE [Concomitant]
     Dosage: 20 MG, UNK
  9. OXYCODONE / ACETAMINOPHEN [Concomitant]
     Dosage: 325 MG, UNK
  10. TORSEMIDE [Concomitant]
     Dosage: 20 MG, BID
  11. FUROSEMIDE [Concomitant]
     Dosage: 40 MG, BID
  12. METOLAZONE [Concomitant]
     Dosage: 2.5 MG, UNK
  13. ENOXAPARIN [Concomitant]
     Dosage: 60 MG, PRN
  14. CIPROFLOXACIN [Concomitant]
     Dosage: 0.2 %, BID
  15. FLUTICASONE [Concomitant]
     Dosage: UNK, BID
  16. BENADRYL [Concomitant]
     Dosage: 50 MG, UNK
  17. MAGNESIUM GLUCONATE [Concomitant]
     Dosage: 250 MG, UNK
  18. FAMOTIDINE [Concomitant]
     Dosage: 20 MG, BID
  19. ALPRAZOLAM [Concomitant]
     Dosage: 0.5 MG, UNK
  20. ALBUTEROL [Concomitant]
     Dosage: 2.5 MG, Q4HRS

REACTIONS (6)
  - Skin ulcer [Unknown]
  - Debridement [Unknown]
  - Renal failure acute [Unknown]
  - Balance disorder [Unknown]
  - Fall [Unknown]
  - Dyspnoea exertional [Unknown]
